FAERS Safety Report 19624287 (Version 1)
Quarter: 2021Q3

REPORT INFORMATION
  Report Type: Spontaneous
  Country: US (occurrence: US)
  Receive Date: 20210729
  Receipt Date: 20210729
  Transmission Date: 20211014
  Serious: Yes (Hospitalization)
  Sender: FDA-Public Use
  Company Number: US-ABBVIE-21K-163-4006592-00

PATIENT
  Age: 73 Year
  Sex: Female

DRUGS (4)
  1. PFIZER?BIONTECH COVID?19 VACCINE [Concomitant]
     Active Substance: TOZINAMERAN
     Route: 030
     Dates: start: 20210216, end: 20210216
  2. HUMIRA [Suspect]
     Active Substance: ADALIMUMAB
     Indication: PEMPHIGUS
  3. PFIZER?BIONTECH COVID?19 VACCINE [Concomitant]
     Active Substance: TOZINAMERAN
     Indication: COVID-19 IMMUNISATION
     Route: 030
     Dates: start: 202101, end: 202101
  4. HUMIRA [Suspect]
     Active Substance: ADALIMUMAB
     Indication: LICHEN PLANUS
     Route: 058
     Dates: start: 202105

REACTIONS (3)
  - Autoimmune disorder [Not Recovered/Not Resolved]
  - Off label use [Unknown]
  - Tracheostomy [Not Recovered/Not Resolved]

NARRATIVE: CASE EVENT DATE: 2021
